FAERS Safety Report 12176631 (Version 1)
Quarter: 2016Q1

REPORT INFORMATION
  Report Type: Spontaneous
  Country: US (occurrence: US)
  Receive Date: 20160314
  Receipt Date: 20160314
  Transmission Date: 20160526
  Serious: No
  Sender: FDA-Public Use
  Company Number: US-AKORN PHARMACEUTICALS-2015AKN00476

PATIENT
  Age: 18 Year
  Sex: Male
  Weight: 86.17 kg

DRUGS (2)
  1. MYORISAN [Suspect]
     Active Substance: ISOTRETINOIN
     Indication: ACNE CYSTIC
     Dosage: UNK
     Dates: start: 20150427
  2. MYORISAN [Suspect]
     Active Substance: ISOTRETINOIN
     Dosage: 120 MG, 1X/DAY
     Route: 048
     Dates: start: 201507

REACTIONS (2)
  - Dysuria [Recovered/Resolved]
  - Urethritis noninfective [Recovered/Resolved]

NARRATIVE: CASE EVENT DATE: 201507
